FAERS Safety Report 15252253 (Version 1)
Quarter: 2018Q3

REPORT INFORMATION
  Report Type: Spontaneous
  Country: US (occurrence: US)
  Receive Date: 20180717
  Receipt Date: 20180717
  Transmission Date: 20181010
  Serious: Yes (Other)
  Sender: FDA-Public Use
  Company Number: None

PATIENT
  Age: 39 Year
  Sex: Female
  Weight: 67.5 kg

DRUGS (3)
  1. CIPROFLOXACIN. [Suspect]
     Active Substance: CIPROFLOXACIN
     Indication: CHONDRITIS
     Route: 048
     Dates: start: 20180711, end: 20180713
  2. OFLOXACIN OTIC [Concomitant]
     Active Substance: OFLOXACIN
     Dates: start: 20180711, end: 20180713
  3. CIPROFLOXACIN. [Suspect]
     Active Substance: CIPROFLOXACIN
     Indication: PSEUDOMONAS INFECTION
     Route: 048
     Dates: start: 20180711, end: 20180713

REACTIONS (2)
  - Feeling abnormal [None]
  - Sensory disturbance [None]

NARRATIVE: CASE EVENT DATE: 20180711
